FAERS Safety Report 17174108 (Version 34)
Quarter: 2020Q4

REPORT INFORMATION
  Report Type: Report from Study
  Country: JP (occurrence: JP)
  Receive Date: 20191219
  Receipt Date: 20201118
  Transmission Date: 20210113
  Serious: Yes (Hospitalization)
  Sender: FDA-Public Use
  Company Number: JP-ROCHE-2499114

PATIENT
  Age: 71 Year
  Sex: Female
  Weight: 37.2 kg

DRUGS (48)
  1. CISPLATIN. [Suspect]
     Active Substance: CISPLATIN
     Indication: NON-SMALL CELL LUNG CANCER
     Route: 042
  2. ALOXI [Concomitant]
     Active Substance: PALONOSETRON HYDROCHLORIDE
     Indication: PROPHYLAXIS
     Dates: start: 20191204, end: 20191204
  3. SENNA [Concomitant]
     Active Substance: SENNA LEAF\SENNOSIDES\SENNOSIDES A AND B
     Indication: CONSTIPATION
     Dates: start: 20191206, end: 20191214
  4. ISOTONIC SODIUM CHLORIDE SOLUTION [Concomitant]
     Active Substance: SODIUM CHLORIDE
     Dates: start: 20191215, end: 20191230
  5. CEFAMEZIN [Concomitant]
     Active Substance: CEFAZOLIN
     Dates: start: 20191226, end: 20191227
  6. TARLIGE [Concomitant]
     Active Substance: MIROGABALIN BESYLATE
     Indication: CHEST PAIN
     Dates: start: 20200218, end: 20200313
  7. HEPARIN SODIUM. [Concomitant]
     Active Substance: HEPARIN SODIUM
     Indication: THROMBOSIS
     Dates: start: 20200326, end: 20200406
  8. BERIPLAST P COMBI SET [Concomitant]
     Dates: start: 20200527, end: 20200527
  9. VITAMEDIN INTRAVENOUS [Concomitant]
     Active Substance: CYANOCOBALAMIN\PYRIDOXINE HYDROCHLORIDE\THIAMINE
     Dates: start: 20191224, end: 20191226
  10. DECADRON [Concomitant]
     Active Substance: DEXAMETHASONE
     Route: 048
     Dates: start: 20191205, end: 20191207
  11. NOVAMIN (JAPAN) [Concomitant]
     Indication: NAUSEA
     Dates: start: 20191206, end: 20191217
  12. FERROUS SULFATE. [Concomitant]
     Active Substance: FERROUS SULFATE
     Dates: start: 20191220, end: 20191226
  13. ROPION [Concomitant]
     Active Substance: FLURBIPROFEN AXETIL
     Indication: CHEST PAIN
     Dates: start: 20200128, end: 20200307
  14. DECADRON [Concomitant]
     Active Substance: DEXAMETHASONE
     Indication: PROPHYLAXIS
     Route: 048
     Dates: start: 20191205, end: 20191207
  15. LINZESS [Concomitant]
     Active Substance: LINACLOTIDE
     Indication: CONSTIPATION
     Dates: start: 20191205, end: 20200110
  16. SULPIRIDE [Concomitant]
     Active Substance: SULPIRIDE
     Indication: CHRONIC GASTRITIS
     Dates: start: 2012
  17. OMEPRAZOLE. [Concomitant]
     Active Substance: OMEPRAZOLE
     Indication: CHRONIC GASTRITIS
     Dates: start: 2012, end: 20191209
  18. FLUNITRAZEPAM [Concomitant]
     Active Substance: FLUNITRAZEPAM
     Indication: INSOMNIA
     Dates: start: 2009
  19. INTRALIPOS [Concomitant]
     Active Substance: SOYBEAN OIL
     Indication: HYPOALBUMINAEMIA
  20. SODIUM CHLORIDE. [Concomitant]
     Active Substance: SODIUM CHLORIDE
     Indication: HYPONATRAEMIA
  21. LOXONIN [Concomitant]
     Active Substance: LOXOPROFEN SODIUM
     Indication: CYTOKINE RELEASE SYNDROME
     Dates: start: 20191219, end: 20191226
  22. METOCLOPRAMIDE. [Concomitant]
     Active Substance: METOCLOPRAMIDE
     Indication: CHRONIC GASTRITIS
     Dates: start: 20200205, end: 20200307
  23. PIPERACILLIN AND TAZOBACTAM [Concomitant]
     Active Substance: PIPERACILLIN SODIUM\TAZOBACTAM SODIUM
     Indication: BRONCHOPLEURAL FISTULA
     Dates: start: 20200325
  24. EMEND [Concomitant]
     Active Substance: APREPITANT
     Indication: PROPHYLAXIS
     Dates: start: 20191204, end: 20191205
  25. SENNA [Concomitant]
     Active Substance: SENNA LEAF\SENNOSIDES\SENNOSIDES A AND B
     Dates: start: 20200126, end: 20200126
  26. ZOLPIDEM [Concomitant]
     Active Substance: ZOLPIDEM TARTRATE
     Dates: start: 20200126, end: 20200126
  27. RIVAROXABAN [Concomitant]
     Active Substance: RIVAROXABAN
     Indication: THROMBOSIS
     Dates: start: 20200406, end: 20200520
  28. BESOFTEN [Concomitant]
     Active Substance: PENTOSAN POLYSULFATE SODIUM
     Dates: start: 20191227, end: 20200224
  29. TAKECAB [Concomitant]
     Active Substance: VONOPRAZAN FUMARATE
     Indication: CHRONIC GASTRITIS
     Dates: start: 20191210
  30. DEXART [Concomitant]
     Active Substance: DEXAMETHASONE SODIUM PHOSPHATE
     Indication: PROPHYLAXIS
     Dates: start: 20191204, end: 20191204
  31. DIAZEPAM. [Concomitant]
     Active Substance: DIAZEPAM
     Indication: ANXIETY
     Dates: start: 1999
  32. CYANOCOBALAMIN. [Concomitant]
     Active Substance: CYANOCOBALAMIN
     Indication: PREMEDICATION
     Dates: start: 20191126, end: 20191126
  33. AUGMENTIN COMBINATION [Concomitant]
     Active Substance: AMOXICILLIN\CLAVULANATE POTASSIUM
     Dates: start: 20200521
  34. PEMETREXED. [Suspect]
     Active Substance: PEMETREXED
     Indication: NON-SMALL CELL LUNG CANCER
     Dosage: DOSE OF LAST PEMETREXED ADMINISTERED PRIOR TO AE ONSET 641 MG (500 MG/M2)?DATE OF MOST RECENT DOSE O
     Route: 042
     Dates: start: 20191204
  35. MOSAPRIDE [Concomitant]
     Active Substance: MOSAPRIDE
     Indication: CHRONIC GASTRITIS
     Dates: start: 2012
  36. LYRICA [Concomitant]
     Active Substance: PREGABALIN
     Indication: CHEST PAIN
     Dates: start: 20200211, end: 20200217
  37. ATEZOLIZUMAB. [Suspect]
     Active Substance: ATEZOLIZUMAB
     Indication: NON-SMALL CELL LUNG CANCER
     Dosage: DATE OF MOST RECENT DOSE PRIOR TO SAE ONSET: 04/DEC/2019
     Route: 041
     Dates: start: 20191204
  38. ACELIO [Concomitant]
     Active Substance: ACETAMINOPHEN
     Indication: CHEST PAIN
     Dates: start: 20200307, end: 20200314
  39. CEFALEXIN [Concomitant]
     Active Substance: CEPHALEXIN
     Indication: BRONCHOPLEURAL FISTULA
     Dates: start: 20200406, end: 20200423
  40. AUGMENTIN COMBINATION [Concomitant]
     Active Substance: AMOXICILLIN\CLAVULANATE POTASSIUM
     Indication: BRONCHOPLEURAL FISTULA
     Dates: start: 20200423, end: 20200514
  41. CLOPIDOGREL [Concomitant]
     Active Substance: CLOPIDOGREL BISULFATE
     Indication: CEREBRAL INFARCTION
     Dates: start: 20200704
  42. TELEMINSOFT [Concomitant]
     Active Substance: BISACODYL
     Indication: CONSTIPATION
     Dates: start: 20191205, end: 20191205
  43. MAGMITT [Concomitant]
     Active Substance: MAGNESIUM OXIDE
     Indication: CONSTIPATION
     Dates: start: 20191204
  44. ROSUVASTATIN. [Concomitant]
     Active Substance: ROSUVASTATIN
     Indication: HYPERLIPIDAEMIA
     Dates: start: 201811
  45. INTRALIPOS [Concomitant]
     Active Substance: SOYBEAN OIL
     Indication: CYTOKINE RELEASE SYNDROME
     Dates: start: 20191217, end: 20191226
  46. SODIUM CHLORIDE. [Concomitant]
     Active Substance: SODIUM CHLORIDE
     Indication: CYTOKINE RELEASE SYNDROME
     Dates: start: 20191225, end: 20191230
  47. LOXONIN [Concomitant]
     Active Substance: LOXOPROFEN SODIUM
     Indication: HEADACHE
  48. CEFAZOLIN SODIUM. [Concomitant]
     Active Substance: CEFAZOLIN SODIUM
     Indication: INFECTION
     Dates: start: 20200127, end: 20200128

REACTIONS (2)
  - Amylase increased [Recovered/Resolved]
  - Cytokine release syndrome [Recovered/Resolved]

NARRATIVE: CASE EVENT DATE: 20191208
